FAERS Safety Report 4395853-X (Version None)
Quarter: 2004Q3

REPORT INFORMATION
  Report Type: 
  Country: None (occurrence: None)
  Receive Date: 20040712
  Receipt Date: 20040702
  Transmission Date: 20050211
  Serious: Yes (Hospitalization)
  Sender: FDA-Public Use
  Company Number: 2004UW13122

PATIENT
  Age: 77 Year
  Sex: Male

DRUGS (6)
  1. CRESTOR [Suspect]
     Indication: HYPERLIPIDAEMIA
     Dosage: 20 MG QD PO
     Route: 048
     Dates: start: 20040501, end: 20040529
  2. NEXIUM [Concomitant]
  3. METOPROLOL [Concomitant]
  4. ATACAND [Concomitant]
  5. ASPIRIN [Concomitant]
  6. METAMUCIL ^PROCTER + GAMBLE^ [Concomitant]

REACTIONS (7)
  - CHILLS [None]
  - CHOLECYSTITIS ACUTE [None]
  - FAECAL OCCULT BLOOD POSITIVE [None]
  - OBSTRUCTIVE AIRWAYS DISORDER [None]
  - POST PROCEDURAL COMPLICATION [None]
  - RENAL FAILURE ACUTE [None]
  - RHABDOMYOLYSIS [None]
